FAERS Safety Report 16178817 (Version 1)
Quarter: 2019Q2

REPORT INFORMATION
  Report Type: Spontaneous
  Country: AT (occurrence: AT)
  Receive Date: 20190410
  Receipt Date: 20190410
  Transmission Date: 20190711
  Serious: Yes (Other)
  Sender: FDA-Public Use
  Company Number: AT-ROCHE-2300595

PATIENT
  Sex: Female

DRUGS (1)
  1. BONVIVA [Suspect]
     Active Substance: IBANDRONATE SODIUM
     Indication: PRODUCT USED FOR UNKNOWN INDICATION
     Route: 042
     Dates: start: 2017, end: 2018

REACTIONS (3)
  - Bone loss [Unknown]
  - Osteoporosis [Not Recovered/Not Resolved]
  - Fracture [Unknown]

NARRATIVE: CASE EVENT DATE: 2018
